FAERS Safety Report 13449522 (Version 3)
Quarter: 2017Q4

REPORT INFORMATION
  Report Type: Spontaneous
  Country: FR (occurrence: FR)
  Receive Date: 20170417
  Receipt Date: 20171026
  Transmission Date: 20180320
  Serious: Yes (Death, Hospitalization, Disabling, Other)
  Sender: FDA-Public Use
  Company Number: FR-BRISTOL-MYERS SQUIBB COMPANY-BMS-2017-030559

PATIENT
  Age: 52 Year
  Sex: Female
  Weight: 54 kg

DRUGS (1)
  1. OPDIVO [Suspect]
     Active Substance: NIVOLUMAB
     Indication: SQUAMOUS CELL CARCINOMA OF SKIN
     Dosage: 140 MG, Q2WK
     Route: 065
     Dates: start: 20170303, end: 20170317

REACTIONS (7)
  - Pneumonia [Unknown]
  - Dyspnoea exertional [Unknown]
  - Encephalitis [Fatal]
  - Atrial fibrillation [Recovered/Resolved]
  - Pleural effusion [Unknown]
  - Pericardial fibrosis [Unknown]
  - Ischaemic stroke [Unknown]

NARRATIVE: CASE EVENT DATE: 20170320
